FAERS Safety Report 5751516-7 (Version None)
Quarter: 2008Q2

REPORT INFORMATION
  Report Type: 
  Country: None (occurrence: None)
  Receive Date: 20080528
  Receipt Date: 20080515
  Transmission Date: 20081010
  Serious: Yes (Other)
  Sender: FDA-Public Use
  Company Number: PHNU2008DE01332

PATIENT
  Sex: Male
  Weight: 84 kg

DRUGS (7)
  1. RASILEZ [Suspect]
     Indication: CARDIAC DISORDER
  2. PANTOPRAZOLE SODIUM [Interacting]
  3. MARCUMAR [Interacting]
     Dosage: 0.5 MG OR 0.75 DF ALTERNATING
  4. SORTIS [Interacting]
  5. OMEPRAZOLE [Suspect]
     Dosage: 20 MG/D
     Dates: start: 20080301
  6. ACETYLSALICYLIC ACID SRT [Concomitant]
     Dosage: 1 DF, QOD
  7. LASIX [Concomitant]
     Dosage: 40 MG/D

REACTIONS (2)
  - DRUG INTERACTION [None]
  - INTERNATIONAL NORMALISED RATIO INCREASED [None]
